FAERS Safety Report 14246228 (Version 2)
Quarter: 2018Q1

REPORT INFORMATION
  Report Type: Spontaneous
  Country: GB (occurrence: GB)
  Receive Date: 20171204
  Receipt Date: 20180226
  Transmission Date: 20180508
  Serious: Yes (Death, Hospitalization)
  Sender: FDA-Public Use
  Company Number: GB-009507513-1711GBR011747

PATIENT
  Age: 71 Year
  Sex: Female

DRUGS (4)
  1. SUDOCREM [Suspect]
     Active Substance: LANOLIN\ZINC OXIDE
     Indication: DECUBITUS ULCER
     Dosage: 400G TUB, 125G TUB
  2. ELOCON [Suspect]
     Active Substance: MOMETASONE FUROATE
     Indication: DECUBITUS ULCER
     Dosage: 100 GRAM TUBE
  3. AQUAMAX CREAM (EMOLLIENTS) [Suspect]
     Active Substance: EMOLLIENTS
     Indication: DECUBITUS ULCER
     Dosage: 2 X 500 GRAM TUB
  4. E45 CREAM [Suspect]
     Active Substance: LANOLIN\LIGHT MINERAL OIL\PARAFFIN
     Dosage: 125G TUB

REACTIONS (2)
  - Product caught fire [Not Recovered/Not Resolved]
  - Burns fourth degree [Fatal]

NARRATIVE: CASE EVENT DATE: 20171004
